FAERS Safety Report 5799447-0 (Version None)
Quarter: 2008Q3

REPORT INFORMATION
  Report Type: 
  Country: None (occurrence: None)
  Receive Date: 20080702
  Receipt Date: 20080702
  Transmission Date: 20090109
  Serious: Yes (Hospitalization)
  Sender: FDA-Public Use
  Company Number: None

PATIENT
  Sex: Female
  Weight: 49.4 kg

DRUGS (5)
  1. CYCLOPHOSPHAMIDE [Suspect]
     Dosage: 5220 MG
  2. DOXORUBICIN HYDROCHLORIDE [Suspect]
     Dosage: 522 MG
  3. PACLITAXEL [Suspect]
     Dosage: 1344 MG
  4. NEULASTA [Suspect]
     Dosage: 36 MG
  5. TRASTUZMAB 1 [Suspect]
     Dosage: 1490 MG

REACTIONS (12)
  - ACUTE CORONARY SYNDROME [None]
  - ASTHENIA [None]
  - BLOOD PRESSURE DECREASED [None]
  - CARDIAC ARREST [None]
  - CARDIOMEGALY [None]
  - DYSPNOEA [None]
  - FALL [None]
  - HEPATIC FAILURE [None]
  - MALAISE [None]
  - PNEUMONIA [None]
  - SEPSIS [None]
  - TREMOR [None]
